FAERS Safety Report 6612409-6 (Version None)
Quarter: 2010Q1

REPORT INFORMATION
  Report Type: 
  Country: None (occurrence: None)
  Receive Date: 20100303
  Receipt Date: 20100218
  Transmission Date: 20100710
  Serious: Yes (Hospitalization, Other)
  Sender: FDA-Public Use
  Company Number: PHHY2010DE10537

PATIENT
  Age: 53 Year
  Sex: Female

DRUGS (18)
  1. RASILEZ [Suspect]
     Dosage: 300 MG, QD
     Route: 048
     Dates: start: 20090101
  2. MYFORTIC [Suspect]
     Indication: IMMUNOSUPPRESSION
     Dosage: 360 MG, BID
  3. INEGY [Suspect]
     Route: 048
  4. PROGRAF [Concomitant]
     Indication: IMMUNOSUPPRESSION
     Dosage: 1 MG, UNK
     Route: 048
     Dates: end: 20100111
  5. PROGRAF [Concomitant]
     Dosage: 1.5 MG, BID
     Route: 048
  6. DECORTIN [Concomitant]
     Indication: IMMUNOSUPPRESSION
     Dosage: 10 MG, UNK
  7. DECORTIN-H [Concomitant]
     Dosage: 10 MG, QD
     Route: 048
  8. ASPIRIN [Concomitant]
     Dosage: 100 MG, QD
     Route: 048
  9. PLAVIX [Concomitant]
     Dosage: 75 MG, QD
     Route: 048
  10. LEVOTHYROXINE [Concomitant]
     Dosage: 75 UG, QD
     Route: 048
  11. LEVOTHYROXINE [Concomitant]
     Dosage: 125 UG, QD
     Route: 048
  12. PARACETAMOL [Concomitant]
     Dosage: 500 MG, TID
     Route: 048
  13. TOREM [Concomitant]
     Dosage: 10 MG, QD
     Route: 048
  14. NORVASC [Concomitant]
     Dosage: 5 MG, QD
     Route: 048
  15. PANTOZOL [Concomitant]
     Dosage: 40 MG, QD
     Route: 048
  16. RANITIDINE [Concomitant]
     Dosage: 150 MG, QD
     Route: 048
  17. IDEOS [Concomitant]
     Dosage: 1 DF, QD
     Route: 048
  18. PROTELOS (STRONTIUM RANELATE) [Concomitant]
     Dosage: 2 MG, QD
     Route: 048

REACTIONS (16)
  - ABASIA [None]
  - ALANINE AMINOTRANSFERASE INCREASED [None]
  - ARTHRALGIA [None]
  - ASPARTATE AMINOTRANSFERASE INCREASED [None]
  - BACK PAIN [None]
  - BLOOD LACTATE DEHYDROGENASE INCREASED [None]
  - BLOOD THYROID STIMULATING HORMONE INCREASED [None]
  - DYSSTASIA [None]
  - GAMMA-GLUTAMYLTRANSFERASE INCREASED [None]
  - GLOMERULAR FILTRATION RATE DECREASED [None]
  - HYPOTONIA [None]
  - MUSCULAR WEAKNESS [None]
  - MUSCULOSKELETAL PAIN [None]
  - MYALGIA [None]
  - PAIN IN EXTREMITY [None]
  - RHABDOMYOLYSIS [None]
